FAERS Safety Report 13714567 (Version 1)
Quarter: 2017Q3

REPORT INFORMATION
  Report Type: Spontaneous
  Country: FR (occurrence: FR)
  Receive Date: 20170704
  Receipt Date: 20170704
  Transmission Date: 20171127
  Serious: Yes (Hospitalization)
  Sender: FDA-Public Use
  Company Number: FR-ASTRAZENECA-2017SE68473

PATIENT
  Age: 57 Year
  Sex: Male

DRUGS (6)
  1. AMLOR [Concomitant]
     Active Substance: AMLODIPINE BESYLATE
  2. CANDESARTAN CILEXETIL. [Suspect]
     Active Substance: CANDESARTAN CILEXETIL
     Indication: HYPERTENSION
     Route: 048
     Dates: start: 20170512, end: 20170516
  3. PREVISCAN [Concomitant]
     Active Substance: FLUINDIONE
     Dosage: THREE QUARTERS OF TABLET DAILY IN THE EVENING
  4. COKENZEN [Suspect]
     Active Substance: CANDESARTAN CILEXETIL\HYDROCHLOROTHIAZIDE
     Indication: HYPERTENSION
     Dosage: 16 MG/12.5 MG, UNKNOWN
     Route: 048
     Dates: start: 2015, end: 20170516
  5. BISOPROLOL [Concomitant]
     Active Substance: BISOPROLOL
  6. METFORMIN [Concomitant]
     Active Substance: METFORMIN HYDROCHLORIDE
     Dates: end: 20170516

REACTIONS (1)
  - Nephropathy [Recovered/Resolved]

NARRATIVE: CASE EVENT DATE: 20170516
